FAERS Safety Report 23160334 (Version 1)
Quarter: 2023Q4

REPORT INFORMATION
  Report Type: Spontaneous
  Country: NL (occurrence: NL)
  Receive Date: 20231108
  Receipt Date: 20231108
  Transmission Date: 20240110
  Serious: Yes (Death, Other)
  Sender: FDA-Public Use
  Company Number: NL-AMGEN-NLDSP2023196989

PATIENT

DRUGS (9)
  1. TRASTUZUMAB [Suspect]
     Active Substance: TRASTUZUMAB
     Indication: HER2 positive gastric cancer
     Dosage: UNK
     Route: 065
  2. TRASTUZUMAB [Suspect]
     Active Substance: TRASTUZUMAB
     Indication: Adenocarcinoma gastric
  3. TRASTUZUMAB [Suspect]
     Active Substance: TRASTUZUMAB
     Indication: Oesophageal adenocarcinoma
  4. RAMUCIRUMAB [Concomitant]
     Active Substance: RAMUCIRUMAB
     Indication: HER2 positive gastric cancer
     Dosage: UNK
     Route: 065
  5. RAMUCIRUMAB [Concomitant]
     Active Substance: RAMUCIRUMAB
     Indication: Adenocarcinoma gastric
  6. RAMUCIRUMAB [Concomitant]
     Active Substance: RAMUCIRUMAB
     Indication: Oesophageal adenocarcinoma
  7. PACLITAXEL [Concomitant]
     Active Substance: PACLITAXEL
     Indication: HER2 positive gastric cancer
     Dosage: UNK
     Route: 065
  8. PACLITAXEL [Concomitant]
     Active Substance: PACLITAXEL
     Indication: Adenocarcinoma gastric
  9. PACLITAXEL [Concomitant]
     Active Substance: PACLITAXEL
     Indication: Oesophageal adenocarcinoma

REACTIONS (4)
  - Death [Fatal]
  - HER2 positive gastric cancer [Unknown]
  - Adenocarcinoma gastric [Unknown]
  - Oesophageal adenocarcinoma [Unknown]
